FAERS Safety Report 7952055 (Version 2)
Quarter: 2012Q4

REPORT INFORMATION
  Report Type: 
  Country: VE (occurrence: VE)
  Receive Date: 20110519
  Receipt Date: 20121226
  Transmission Date: 20130627
  Serious: Yes (Hospitalization, Other)
  Sender: FDA-Public Use
  Company Number: PHHY2011VE39369

PATIENT
  Age: 73 Year
  Sex: Female

DRUGS (3)
  1. ACLASTA [Suspect]
     Indication: OSTEOPOROSIS
     Dosage: 5mg/ 100mL annual
     Route: 042
     Dates: start: 200811
  2. ACLASTA [Suspect]
     Dosage: 5mg/ 100mL annual
     Route: 042
     Dates: start: 2009
  3. ACLASTA [Suspect]
     Dosage: 5mg/ 100mL annual
     Route: 042
     Dates: start: 201012, end: 201012

REACTIONS (2)
  - Spinal fracture [Recovered/Resolved]
  - Memory impairment [Unknown]
